FAERS Safety Report 8698529 (Version 3)
Quarter: 2012Q4

REPORT INFORMATION
  Report Type: 
  Country: US (occurrence: US)
  Receive Date: 20120802
  Receipt Date: 20120913
  Transmission Date: 20130627
  Serious: Yes (Other)
  Sender: FDA-Public Use
  Company Number: US-ASTELLAS-2012US006494

PATIENT

DRUGS (4)
  1. VESICARE [Suspect]
     Indication: BLADDER DISORDER
     Dosage: UNK
     Route: 048
     Dates: start: 2012, end: 2012
  2. LYRICA [Suspect]
     Indication: FIBROMYALGIA
     Dosage: 25 mg, bid
     Route: 048
     Dates: start: 201207
  3. ANTIDEPRESSANTS [Suspect]
     Indication: DEPRESSION
     Dosage: UNK
     Route: 065
  4. UNSPECIFIED INGREDIENT [Suspect]
     Indication: PRODUCT USED FOR UNKNOWN INDICATION
     Dosage: UNK
     Route: 065

REACTIONS (13)
  - Suicidal ideation [Recovered/Resolved]
  - Adverse drug reaction [Unknown]
  - Disturbance in attention [Unknown]
  - Balance disorder [Unknown]
  - Therapeutic response unexpected [Unknown]
  - Pain [Not Recovered/Not Resolved]
  - Weight increased [Unknown]
  - Vision blurred [Not Recovered/Not Resolved]
  - Oedema peripheral [Not Recovered/Not Resolved]
  - Fatigue [Not Recovered/Not Resolved]
  - Confusional state [Unknown]
  - Rash [Unknown]
  - Musculoskeletal stiffness [Unknown]
